FAERS Safety Report 21735512 (Version 1)
Quarter: 2022Q4

REPORT INFORMATION
  Report Type: Report from Study
  Country: GB (occurrence: GB)
  Receive Date: 20221215
  Receipt Date: 20221215
  Transmission Date: 20230113
  Serious: Yes (Death, Hospitalization)
  Sender: FDA-Public Use
  Company Number: GB-ROCHE-3208478

PATIENT
  Age: 67 Year
  Sex: Female

DRUGS (18)
  1. CAPECITABINE [Suspect]
     Active Substance: CAPECITABINE
     Indication: Product used for unknown indication
     Dosage: UNIT DOSE : 1000 MG, THERAPY DURATION : 22 DAYS
     Route: 048
     Dates: start: 20161122, end: 20161213
  2. CAPECITABINE [Suspect]
     Active Substance: CAPECITABINE
     Dosage: UNIT DOSE : 1500 MG, THERAPY DURATION : 22 DAYS
     Route: 048
     Dates: start: 20161122, end: 20161213
  3. CAPECITABINE [Suspect]
     Active Substance: CAPECITABINE
     Dosage: UNIT DOSE : 1300 MG, THERAPY DURATION : 4 DAYS
     Route: 048
     Dates: start: 20161213, end: 20161216
  4. PACLITAXEL [Suspect]
     Active Substance: PACLITAXEL
     Indication: Breast cancer metastatic
     Dosage: UNIT DOSE : 141 MG, FREQUENCY ; 1 , FREQUENCY TIME : 1 MONTHS, THERAPY DURATION : 28 DAYS
     Route: 065
     Dates: start: 20151124, end: 20151221
  5. PACLITAXEL [Suspect]
     Active Substance: PACLITAXEL
     Dosage: UNIT DOSE : 141 MG, THERAPY END DATE : NOT ASKED
     Route: 042
     Dates: start: 20161122
  6. TAMOXIFEN [Suspect]
     Active Substance: TAMOXIFEN
     Indication: Product used for unknown indication
     Dosage: 20 MILLIGRAM DAILY;  UNIT DOSE : 20 MG, FREQUENCY ; 1 , FREQUENCY TIME : 1 DAYS, THERAPY DURATION :
     Route: 048
     Dates: start: 20160712, end: 20160802
  7. EXEMESTANE [Suspect]
     Active Substance: EXEMESTANE
     Indication: Product used for unknown indication
     Dosage: FREQUENCY : 1 , FREQUENCY TIME : 1 DAYS, THERAPY START DATE : NOT ASKED
     Route: 048
     Dates: end: 20160712
  8. EXEMESTANE [Suspect]
     Active Substance: EXEMESTANE
     Dosage: 25 MILLIGRAM DAILY;  UNIT DOSE : 25 MG, FREQUENCY ; 1 , FREQUENCY TIME : 1 DAYS, THERAPY DURATION :
     Route: 065
     Dates: start: 20160531, end: 20160610
  9. ADALIMUMAB [Suspect]
     Active Substance: ADALIMUMAB
     Indication: Product used for unknown indication
     Dosage: UNIT DOSE : 40 MG, FREQUENCY ; 1 , FREQUENCY TIME : 2 WEEKS, THERAPY END DATE : NOT ASKED
     Route: 058
     Dates: start: 20151124
  10. TAMOXIFEN [Suspect]
     Active Substance: TAMOXIFEN
     Indication: Breast cancer metastatic
     Dosage: UNIT DOSE : 600 MG, FREQUENCY ; 1 , FREQUENCY TIME : 3 WEEKS,
     Route: 065
  11. TAMOXIFEN [Suspect]
     Active Substance: TAMOXIFEN
     Dosage: 20 MILLIGRAM DAILY;  UNIT DOSE : 20 MG, FREQUENCY ; 1 , FREQUENCY TIME : 1 DAYS, THERAPY DURATION :
     Route: 048
     Dates: start: 20160712, end: 20160802
  12. TRASTUZUMAB [Suspect]
     Active Substance: TRASTUZUMAB
     Indication: Breast cancer metastatic
     Dosage: UNIT DOSE : 600 MG, FREQUENCY ; 1 , FREQUENCY TIME : 3 WEEKS, THERAPY DURATION : 169 DAYS
     Route: 058
     Dates: start: 20160531, end: 20161115
  13. HYALURONIDASE (HUMAN RECOMBINANT) [Suspect]
     Active Substance: HYALURONIDASE (HUMAN RECOMBINANT)
     Indication: HER2 positive breast cancer
     Dosage: UNIT DOSE : 600 MG, THERAPY DURATION : 169 DAYS
     Route: 058
     Dates: start: 20160531, end: 20161115
  14. HYALURONIDASE (HUMAN RECOMBINANT) [Suspect]
     Active Substance: HYALURONIDASE (HUMAN RECOMBINANT)
     Dosage: UNIT DOSE : 600 MG, THERAPY DURATION : 28 DAYS
     Route: 058
     Dates: start: 20151124, end: 20151221
  15. HYALURONIDASE (HUMAN RECOMBINANT) [Suspect]
     Active Substance: HYALURONIDASE (HUMAN RECOMBINANT)
     Dosage: UNIT DOSE : 600 MG, FREQUENCY ; 1 , FREQUENCY TIME : 3 WEEKS, THERAPY DURATION : 28 DAYS
     Route: 058
     Dates: start: 20151124, end: 20151221
  16. CALCIUM CARBONATE\CHOLECALCIFEROL [Concomitant]
     Active Substance: CALCIUM CARBONATE\CHOLECALCIFEROL
     Indication: Product used for unknown indication
     Dosage: 1.5 DOSAGE FORMS DAILY;  UNIT DOSE : 1.5 DOSAGE FORMS,  FREQUENCY ; 1 , FREQUENCY TIME : 1 DAYS, THE
     Route: 048
     Dates: start: 20101221, end: 201511
  17. ENOXAPARIN [Concomitant]
     Active Substance: ENOXAPARIN
     Indication: Embolism venous
     Dosage: 20 MILLIGRAM DAILY;  UNIT DOSE : 20 MG, FREQUENCY ; 1 , FREQUENCY TIME : 1 DAYS, THERAPY DURATION :
     Route: 058
     Dates: start: 20160104, end: 20160106
  18. OMEPRAZOLE [Concomitant]
     Active Substance: OMEPRAZOLE
     Indication: Product used for unknown indication
     Dosage: 20 MILLIGRAM DAILY;  UNIT DOSE : 20 MG, FREQUENCY ; 1 , FREQUENCY TIME : 1 DAYS,
     Route: 048
     Dates: start: 20170530

REACTIONS (59)
  - Death [Fatal]
  - Haemoglobin decreased [Not Recovered/Not Resolved]
  - Asthenia [Not Recovered/Not Resolved]
  - Irritability [Recovered/Resolved]
  - White blood cell count increased [Recovered/Resolved]
  - Tremor [Unknown]
  - Cerebral haemorrhage [Recovered/Resolved with Sequelae]
  - Hypokalaemia [Recovered/Resolved]
  - Ascites [Not Recovered/Not Resolved]
  - Blood alkaline phosphatase increased [Recovered/Resolved with Sequelae]
  - Fatigue [Unknown]
  - Nausea [Recovered/Resolved]
  - Back pain [Recovered/Resolved]
  - Musculoskeletal stiffness [Not Recovered/Not Resolved]
  - Malaise [Not Recovered/Not Resolved]
  - Headache [Unknown]
  - Product administered at inappropriate site [Unknown]
  - Colitis ulcerative [Recovered/Resolved]
  - Lymphopenia [Recovered/Resolved with Sequelae]
  - Sinusitis [Recovered/Resolved]
  - Neck pain [Recovered/Resolved]
  - Hypoalbuminaemia [Recovered/Resolved]
  - Blood alkaline phosphatase increased [Recovered/Resolved]
  - Alanine aminotransferase increased [Recovered/Resolved]
  - Constipation [Recovered/Resolved]
  - Blood glucose increased [Recovered/Resolved]
  - Sensory loss [Recovered/Resolved]
  - Agitation [Recovered/Resolved]
  - Crying [Recovered/Resolved]
  - Sensory disturbance [Not Recovered/Not Resolved]
  - Protein total decreased [Recovered/Resolved]
  - Diarrhoea [Recovered/Resolved]
  - Vomiting [Recovered/Resolved]
  - Asthenia [Unknown]
  - Fatigue [Recovered/Resolved]
  - Dyspnoea [Recovered/Resolved]
  - Blood bilirubin increased [Recovered/Resolved]
  - Blood urea increased [Recovered/Resolved]
  - Hypernatraemia [Recovered/Resolved]
  - Balance disorder [Unknown]
  - Rectal haemorrhage [Unknown]
  - C-reactive protein increased [Recovered/Resolved]
  - Injection site pain [Recovered/Resolved]
  - Ill-defined disorder [Recovered/Resolved]
  - Muscle twitching [Recovered/Resolved]
  - Neutrophil count increased [Recovered/Resolved]
  - Pyrexia [Recovered/Resolved with Sequelae]
  - Blood phosphorus increased [Recovered/Resolved]
  - Blood creatinine increased [Recovered/Resolved]
  - Pain [Recovered/Resolved]
  - Hypertension [Recovered/Resolved with Sequelae]
  - Aspartate aminotransferase increased [Recovered/Resolved]
  - Vomiting [Recovered/Resolved]
  - Insomnia [Unknown]
  - Abdominal pain upper [Unknown]
  - Depressed mood [Unknown]
  - Urinary tract infection [Unknown]
  - Crohn^s disease [Not Recovered/Not Resolved]
  - Hypertension [Recovered/Resolved with Sequelae]

NARRATIVE: CASE EVENT DATE: 20151124
